FAERS Safety Report 23596209 (Version 1)
Quarter: 2024Q1

REPORT INFORMATION
  Report Type: Spontaneous
  Country: US (occurrence: None)
  Receive Date: 20240304
  Receipt Date: 20240304
  Transmission Date: 20240410
  Serious: Yes (Hospitalization, Disabling, Other)
  Sender: FDA-Public Use
  Company Number: None

PATIENT
  Age: 44 Year
  Sex: Female
  Weight: 62.1 kg

DRUGS (2)
  1. TOPIRAMATE [Suspect]
     Active Substance: TOPIRAMATE
     Dates: start: 20240131, end: 20240218
  2. MENTHOL\NICOTINE [Suspect]
     Active Substance: MENTHOL?\NICOTINE

REACTIONS (2)
  - Seizure [None]
  - Paraesthesia [None]

NARRATIVE: CASE EVENT DATE: 20240212
